FAERS Safety Report 20864372 (Version 2)
Quarter: 2022Q2

REPORT INFORMATION
  Report Type: Spontaneous
  Country: US (occurrence: US)
  Receive Date: 20220523
  Receipt Date: 20220614
  Transmission Date: 20220721
  Serious: Yes (Other)
  Sender: FDA-Public Use
  Company Number: US-BRISTOL-MYERS SQUIBB COMPANY-2022-036581

PATIENT
  Age: 78 Year
  Sex: Female
  Weight: 78.4 kg

DRUGS (2)
  1. REVLIMID [Suspect]
     Active Substance: LENALIDOMIDE
     Indication: Plasma cell myeloma
     Dosage: DAILY DAYS 1-14, EVERY 21 DAYS
     Route: 048
     Dates: start: 20200917
  2. XARELTO [Suspect]
     Active Substance: RIVAROXABAN
     Indication: Thrombosis
     Route: 065

REACTIONS (4)
  - Upper limb fracture [Unknown]
  - Thrombosis [Unknown]
  - Oedema [Unknown]
  - Abdominal pain [Not Recovered/Not Resolved]
